FAERS Safety Report 7234091-X (Version None)
Quarter: 2011Q1

REPORT INFORMATION
  Report Type: 
  Country: None (occurrence: None)
  Receive Date: 20110113
  Receipt Date: 20110113
  Transmission Date: 20110831
  Serious: Yes (Life-Threatening)
  Sender: FDA-Public Use
  Company Number: None

PATIENT
  Sex: Male
  Weight: 109.7705 kg

DRUGS (1)
  1. CARVEDILOL [Suspect]
     Indication: HYPERTENSION
     Dosage: ONCE BID PO
     Route: 048
     Dates: start: 20080201, end: 20080220

REACTIONS (3)
  - HEART RATE INCREASED [None]
  - DYSPNOEA [None]
  - FATIGUE [None]
